FAERS Safety Report 6418221-5 (Version None)
Quarter: 2009Q4

REPORT INFORMATION
  Report Type: 
  Country: None (occurrence: None)
  Receive Date: 20091026
  Receipt Date: 20091013
  Transmission Date: 20100525
  Serious: Yes (Disabling)
  Sender: FDA-Public Use
  Company Number: ADR38652009

PATIENT
  Age: 41 Year
  Sex: Male

DRUGS (2)
  1. SIMVASTATIN [Suspect]
     Indication: DIABETES MELLITUS
     Dosage: 10 MG, ORAL
     Route: 048
     Dates: start: 20070515, end: 20070530
  2. ATORVASTATIN [Concomitant]

REACTIONS (1)
  - LETHARGY [None]
